FAERS Safety Report 5024978-0 (Version None)
Quarter: 2006Q2

REPORT INFORMATION
  Report Type: 
  Country: None (occurrence: None)
  Receive Date: 20060607
  Receipt Date: 20060523
  Transmission Date: 20061013
  Serious: Yes (Other)
  Sender: FDA-Public Use
  Company Number: 2006-UK-02255UK

PATIENT
  Age: 62 Year
  Sex: Male

DRUGS (4)
  1. MORPHINE [Suspect]
     Dosage: 15MG/10MG TWICE DAILY (TWICE DAILY)
     Dates: start: 20060324, end: 20060327
  2. FLUCONAZOLE [Concomitant]
  3. SCOPOLAMINE [Concomitant]
  4. MOVICOL [Concomitant]

REACTIONS (6)
  - APNOEA [None]
  - DELIRIUM [None]
  - HEADACHE [None]
  - MIOSIS [None]
  - OVERDOSE [None]
  - URINARY RETENTION [None]
